FAERS Safety Report 9648393 (Version 7)
Quarter: 2015Q1

REPORT INFORMATION
  Report Type: Report from Study
  Country: US (occurrence: US)
  Receive Date: 20131028
  Receipt Date: 20150206
  Transmission Date: 20150721
  Serious: Yes (Other)
  Sender: FDA-Public Use
  Company Number: US-SA-2013SA107107

PATIENT
  Age: 48 Year
  Sex: Female

DRUGS (2)
  1. XANAX [Suspect]
     Active Substance: ALPRAZOLAM
     Indication: PRODUCT USED FOR UNKNOWN INDICATION
     Route: 065
  2. AUBAGIO [Suspect]
     Active Substance: TERIFLUNOMIDE
     Indication: MULTIPLE SCLEROSIS
     Route: 048
     Dates: start: 20130521, end: 20150116

REACTIONS (22)
  - Multiple sclerosis [Not Recovered/Not Resolved]
  - Condition aggravated [Not Recovered/Not Resolved]
  - Hypertension [Not Recovered/Not Resolved]
  - Alopecia [Not Recovered/Not Resolved]
  - Vomiting [Unknown]
  - Blood potassium decreased [Unknown]
  - Vertigo [Unknown]
  - Breast cyst [Unknown]
  - Smear cervix abnormal [Unknown]
  - Panic attack [Unknown]
  - Inflammation [Unknown]
  - Dyspnoea [Unknown]
  - Anxiety [Unknown]
  - Speech disorder [Unknown]
  - Nervous system disorder [Unknown]
  - Myocardial infarction [Unknown]
  - Pain [Unknown]
  - Herpes zoster [Not Recovered/Not Resolved]
  - Insomnia [Unknown]
  - Malaise [Not Recovered/Not Resolved]
  - Gait disturbance [Unknown]
  - Eye disorder [Unknown]

NARRATIVE: CASE EVENT DATE: 20131014
